FAERS Safety Report 12267581 (Version 1)
Quarter: 2016Q2

REPORT INFORMATION
  Report Type: Report from Study
  Country: CA (occurrence: CA)
  Receive Date: 20160414
  Receipt Date: 20160414
  Transmission Date: 20160815
  Serious: Yes (Other)
  Sender: FDA-Public Use
  Company Number: CA-TAKEDA-2015MPI007069

PATIENT
  Age: 78 Year
  Sex: Male

DRUGS (2)
  1. VELCADE [Suspect]
     Active Substance: BORTEZOMIB
     Dosage: 1.3 MG/M2, UNK
     Dates: start: 201504
  2. VELCADE [Suspect]
     Active Substance: BORTEZOMIB
     Indication: MANTLE CELL LYMPHOMA
     Dosage: 3.5 MG, UNK
     Route: 065
     Dates: start: 201504

REACTIONS (2)
  - Neurotoxicity [Unknown]
  - Neuropathy peripheral [Not Recovered/Not Resolved]
